FAERS Safety Report 23998075 (Version 8)
Quarter: 2025Q1

REPORT INFORMATION
  Report Type: Spontaneous
  Country: CA (occurrence: CA)
  Receive Date: 20240621
  Receipt Date: 20250117
  Transmission Date: 20250408
  Serious: Yes (Hospitalization, Other)
  Sender: CELLTRION
  Company Number: CA-PFIZER INC-202400194075

PATIENT

DRUGS (7)
  1. INFLECTRA [Suspect]
     Active Substance: INFLIXIMAB-DYYB
     Indication: Crohn^s disease
     Route: 042
     Dates: start: 20240611, end: 20240611
  2. INFLECTRA [Suspect]
     Active Substance: INFLIXIMAB-DYYB
     Route: 042
     Dates: start: 20240828
  3. INFLECTRA [Suspect]
     Active Substance: INFLIXIMAB-DYYB
     Route: 042
     Dates: start: 20241009
  4. PREDNISONE [Concomitant]
     Active Substance: PREDNISONE
     Dates: start: 20240503
  5. PREDNISONE [Concomitant]
     Active Substance: PREDNISONE
  6. PREDNISONE [Concomitant]
     Active Substance: PREDNISONE
  7. CHOLECALCIFEROL [Concomitant]
     Active Substance: CHOLECALCIFEROL

REACTIONS (14)
  - Obstruction [Recovering/Resolving]
  - Abscess [Recovering/Resolving]
  - Condition aggravated [Recovering/Resolving]
  - Cardiac disorder [Unknown]
  - Drug hypersensitivity [Unknown]
  - White blood cell count increased [Recovering/Resolving]
  - Haemoconcentration [Recovering/Resolving]
  - Blood lactic acid increased [Unknown]
  - C-reactive protein increased [Unknown]
  - Neutrophil count decreased [Unknown]
  - Platelet count decreased [Unknown]
  - Faecal calprotectin decreased [Unknown]
  - Alanine aminotransferase increased [Unknown]
  - Vitamin B12 decreased [Unknown]

NARRATIVE: CASE EVENT DATE: 20240601
